FAERS Safety Report 10050828 (Version 2)
Quarter: 2014Q2

REPORT INFORMATION
  Report Type: Spontaneous
  Country: US (occurrence: US)
  Receive Date: 20140401
  Receipt Date: 20140509
  Transmission Date: 20141212
  Serious: Yes (Other)
  Sender: FDA-Public Use
  Company Number: US-ASTRAZENECA-2014SE04954

PATIENT
  Age: 42 Year
  Sex: Male
  Weight: 97.5 kg

DRUGS (3)
  1. NEXIUM [Suspect]
     Indication: GASTROOESOPHAGEAL REFLUX DISEASE
     Route: 048
     Dates: start: 2004
  2. RANITIDINE [Suspect]
     Route: 065
  3. VITAMINS [Concomitant]
     Dosage: UNKNOWN

REACTIONS (8)
  - Cardiac disorder [Unknown]
  - Discomfort [Unknown]
  - Gastrooesophageal reflux disease [Unknown]
  - Nephrolithiasis [Unknown]
  - Low density lipoprotein increased [Unknown]
  - Ultrasound abdomen abnormal [Unknown]
  - Alanine aminotransferase increased [Unknown]
  - Intentional product misuse [Unknown]
